FAERS Safety Report 8416293-X (Version None)
Quarter: 2012Q2

REPORT INFORMATION
  Report Type: 
  Country: None (occurrence: None)
  Receive Date: 20120606
  Receipt Date: 20120522
  Transmission Date: 20120825
  Serious: Yes (Death, Other)
  Sender: FDA-Public Use
  Company Number: US-ROCHE-1072012

PATIENT

DRUGS (4)
  1. DOCETAXEL [Suspect]
     Indication: GASTROOESOPHAGEAL CANCER
  2. CISPLATIN [Suspect]
     Indication: GASTROOESOPHAGEAL CANCER
  3. AVASTIN [Suspect]
     Indication: GASTROOESOPHAGEAL CANCER
  4. IRINOTECAN HYDROCHLORIDE [Suspect]
     Indication: GASTROOESOPHAGEAL CANCER

REACTIONS (11)
  - SUDDEN DEATH [None]
  - DIARRHOEA [None]
  - INFECTION [None]
  - HYPERTENSION [None]
  - VOMITING [None]
  - NEUTROPENIA [None]
  - THROMBOCYTOPENIA [None]
  - FATIGUE [None]
  - DECREASED APPETITE [None]
  - EMBOLISM [None]
  - OESOPHAGEAL HAEMORRHAGE [None]
